FAERS Safety Report 17921545 (Version 1)
Quarter: 2020Q2

REPORT INFORMATION
  Report Type: Spontaneous
  Country: CA (occurrence: CA)
  Receive Date: 20200622
  Receipt Date: 20200622
  Transmission Date: 20200714
  Serious: Yes (Life-Threatening)
  Sender: FDA-Public Use
  Company Number: CA-ROCHE-2627031

PATIENT
  Age: 64 Year
  Sex: Male

DRUGS (4)
  1. ACTIVASE [Suspect]
     Active Substance: ALTEPLASE
     Indication: CEREBRAL INFARCTION
     Dosage: FREQUENCY: ONCE
     Route: 040
  2. NPH [ISOPHANE INSULIN] [Concomitant]
     Active Substance: INSULIN NOS
  3. NOVORAPID [Concomitant]
     Active Substance: INSULIN ASPART
  4. ACTIVASE [Suspect]
     Active Substance: ALTEPLASE
     Dosage: FREQUENCY: ONCE
     Route: 041

REACTIONS (2)
  - Haemorrhagic transformation stroke [Unknown]
  - Therapy non-responder [Unknown]
